FAERS Safety Report 20246006 (Version 1)
Quarter: 2021Q4

REPORT INFORMATION
  Report Type: Spontaneous
  Country: AU (occurrence: AU)
  Receive Date: 20211229
  Receipt Date: 20211229
  Transmission Date: 20220303
  Serious: Yes (Hospitalization, Other)
  Sender: FDA-Public Use
  Company Number: AU-LUPIN PHARMACEUTICALS INC.-2021-25801

PATIENT
  Age: 59 Year
  Sex: Male

DRUGS (1)
  1. CALCIUM [Suspect]
     Active Substance: CALCIUM
     Indication: Radius fracture
     Dosage: UNK (TWO TABLETS CONTAINING CALCIUM CARBONATE 1616 MG THREE TIMES A DAY)
     Route: 065

REACTIONS (1)
  - Milk-alkali syndrome [Recovered/Resolved]
